FAERS Safety Report 10179477 (Version 1)
Quarter: 2014Q2

REPORT INFORMATION
  Report Type: Spontaneous
  Country: US (occurrence: None)
  Receive Date: 20140425
  Receipt Date: 20140425
  Transmission Date: 20141212
  Serious: No
  Sender: FDA-Public Use
  Company Number: AP356-00516-SPO-US

PATIENT
  Age: 39 Year
  Sex: Female
  Weight: 114 kg

DRUGS (2)
  1. BELVIQ (LORCASERIN HYDROCHLORIDE) [Suspect]
     Indication: WEIGHT DECREASED
     Route: 048
     Dates: start: 20140221, end: 20140306
  2. CYMBALTA [Concomitant]

REACTIONS (3)
  - Pruritus [None]
  - Irritability [None]
  - Anger [None]
